FAERS Safety Report 17867753 (Version 1)
Quarter: 2020Q2

REPORT INFORMATION
  Report Type: Spontaneous
  Country: US (occurrence: US)
  Receive Date: 20200605
  Receipt Date: 20200605
  Transmission Date: 20200714
  Serious: Yes (Other)
  Sender: FDA-Public Use
  Company Number: US-AMNEAL PHARMACEUTICALS-2020-AMRX-01602

PATIENT
  Age: 6 Year
  Sex: Male

DRUGS (1)
  1. BACLOFEN. [Suspect]
     Active Substance: BACLOFEN
     Indication: ACCIDENTAL EXPOSURE TO PRODUCT
     Dosage: 1300 MILLIGRAM, SINGLE
     Route: 048

REACTIONS (5)
  - Accidental exposure to product by child [Unknown]
  - Toxicity to various agents [Recovering/Resolving]
  - Depressed level of consciousness [Recovering/Resolving]
  - Respiratory failure [Recovering/Resolving]
  - Mental status changes [Recovering/Resolving]
